FAERS Safety Report 5004990-8 (Version None)
Quarter: 2006Q1

REPORT INFORMATION
  Report Type: 
  Country: None (occurrence: None)
  Receive Date: 20060322
  Receipt Date: 20050921
  Transmission Date: 20060701
  Serious: Yes (Other)
  Sender: FDA-Public Use
  Company Number: 2005132375

PATIENT
  Age: 66 Year
  Sex: Male

DRUGS (3)
  1. HEPARIN SODIUM [Suspect]
     Indication: ANTICOAGULANT THERAPY
     Dates: start: 20040827, end: 20040827
  2. HEPARIN SODIUM [Suspect]
     Indication: VASCULAR BYPASS GRAFT
     Dates: start: 20040827, end: 20040827
  3. NITROPRUSSIDE (NITROPRUSSIDE) [Suspect]
     Indication: ILL-DEFINED DISORDER
     Dosage: 41 ML, INTRAVENOUS
     Route: 042
     Dates: start: 20040827, end: 20040828

REACTIONS (1)
  - POST PROCEDURAL HAEMORRHAGE [None]
